FAERS Safety Report 10994858 (Version 4)
Quarter: 2017Q1

REPORT INFORMATION
  Report Type: Report from Study
  Country: BR (occurrence: BR)
  Receive Date: 20150407
  Receipt Date: 20170321
  Transmission Date: 20170428
  Serious: No
  Sender: FDA-Public Use
  Company Number: PHHY2015BR037243

PATIENT
  Age: 64 Year
  Sex: Female
  Weight: 62 kg

DRUGS (7)
  1. MANTIDAN [Concomitant]
     Active Substance: AMANTADINE HYDROCHLORIDE
     Indication: GAIT DISTURBANCE
     Dosage: 1 DF, BID
     Route: 048
     Dates: start: 201411
  2. GILENYA [Suspect]
     Active Substance: FINGOLIMOD HYDROCHLORIDE
     Dosage: 0.5 MG, QD
     Route: 048
     Dates: start: 201702
  3. MANTIDAN [Concomitant]
     Active Substance: AMANTADINE HYDROCHLORIDE
     Dosage: 100 MG, BID (EVERY 12 HOURS)
     Route: 048
  4. GILENYA [Suspect]
     Active Substance: FINGOLIMOD HYDROCHLORIDE
     Dosage: 0.5 MG, QD
     Route: 048
     Dates: start: 20150116, end: 201612
  5. FONT D [Concomitant]
     Indication: VITAMIN SUPPLEMENTATION
     Dosage: 10 DRP, QD
     Route: 048
     Dates: start: 201501
  6. GILENYA [Suspect]
     Active Substance: FINGOLIMOD HYDROCHLORIDE
     Indication: MULTIPLE SCLEROSIS
     Dosage: 0.5 MG, QD
     Route: 048
     Dates: start: 2012
  7. VITAMIN D [Concomitant]
     Active Substance: CHOLECALCIFEROL
     Indication: PRODUCT USED FOR UNKNOWN INDICATION
     Dosage: 10 DRP, QD
     Route: 065

REACTIONS (10)
  - Upper limb fracture [Unknown]
  - Fall [Unknown]
  - Muscular weakness [Unknown]
  - Paraesthesia [Unknown]
  - Vision blurred [Not Recovered/Not Resolved]
  - Multiple sclerosis relapse [Unknown]
  - Spinal disorder [Unknown]
  - Nervousness [Unknown]
  - Concomitant disease aggravated [Unknown]
  - Gait disturbance [Unknown]

NARRATIVE: CASE EVENT DATE: 201503
